FAERS Safety Report 9157875 (Version 2)
Quarter: 2013Q2

REPORT INFORMATION
  Report Type: Spontaneous
  Country: US (occurrence: None)
  Receive Date: 20130213
  Receipt Date: 20130517
  Transmission Date: 20140414
  Serious: Yes (Other)
  Sender: FDA-Public Use
  Company Number: AUR-APL-2013-01266

PATIENT
  Age: 71 Year
  Sex: Female
  Weight: 52.15 kg

DRUGS (2)
  1. PAROXETINE (PAROXETINE) [Suspect]
     Indication: ANXIETY
     Dosage: (20 MG, 1 D), UNKNOWN
  2. CENTRUM SILVER WOMEN^S 50+ (CENTRUM SILVER /01292501/) [Suspect]
     Indication: VITAMIN SUPPLEMENTATION
     Dosage: (1 D), ORAL
     Route: 048

REACTIONS (5)
  - Choking [None]
  - Foreign body [None]
  - Anosmia [None]
  - Ageusia [None]
  - Alopecia [None]
